FAERS Safety Report 13215910 (Version 1)
Quarter: 2017Q1

REPORT INFORMATION
  Report Type: Spontaneous
  Country: US (occurrence: US)
  Receive Date: 20170210
  Receipt Date: 20170210
  Transmission Date: 20170428
  Serious: No
  Sender: FDA-Public Use
  Company Number: US-ROCHE-1818837

PATIENT
  Age: 48 Year
  Sex: Female
  Weight: 45.4 kg

DRUGS (6)
  1. XOLAIR [Suspect]
     Active Substance: OMALIZUMAB
     Indication: ASTHMA
     Route: 058
     Dates: start: 20160501, end: 20160502
  2. ZYRTEC [Concomitant]
     Active Substance: CETIRIZINE HYDROCHLORIDE
     Route: 048
  3. SYMBICORT [Concomitant]
     Active Substance: BUDESONIDE\FORMOTEROL FUMARATE DIHYDRATE
     Route: 065
  4. OLOPATADINE [Concomitant]
     Active Substance: OLOPATADINE
     Route: 065
  5. SINGULAIR [Concomitant]
     Active Substance: MONTELUKAST SODIUM
     Route: 048
  6. AZELASTINE [Concomitant]
     Active Substance: AZELASTINE
     Route: 065

REACTIONS (4)
  - Angioedema [Unknown]
  - Swelling [Unknown]
  - Urticaria [Unknown]
  - Oral pruritus [Recovered/Resolved]

NARRATIVE: CASE EVENT DATE: 20160501
